FAERS Safety Report 7919406-9 (Version None)
Quarter: 2011Q4

REPORT INFORMATION
  Report Type: 
  Country: None (occurrence: None)
  Receive Date: 20111115
  Receipt Date: 20111031
  Transmission Date: 20120403
  Serious: Yes (Hospitalization)
  Sender: FDA-Public Use
  Company Number: EU-2011-10136

PATIENT
  Sex: Female
  Weight: 64 kg

DRUGS (8)
  1. SAMSCA [Suspect]
     Indication: INAPPROPRIATE ANTIDIURETIC HORMONE SECRETION
     Dosage: 15 MG MILLIGRAM(S), DAILY DOSE, ORAL
     Route: 048
     Dates: start: 20110401, end: 20110402
  2. COMBIVENT [Concomitant]
  3. LEVOTHYROXINE SODIUM [Concomitant]
  4. MOLLIPECT (BROMHEXINE HYDROCHLORIDE, EPHEDRINE HYDROCHLORIDE, ETHANOL, [Concomitant]
  5. PREDNISOLON (PREDNISOLON) [Concomitant]
  6. ACETYLCYSTEIN (ACETYLCYSTEIN) [Concomitant]
  7. OXASCAND (OXAZEPAM) [Concomitant]
  8. METOPROLOL TARTRATE [Concomitant]

REACTIONS (3)
  - HYPERTENSION [None]
  - PNEUMONIA [None]
  - CHRONIC OBSTRUCTIVE PULMONARY DISEASE [None]
